FAERS Safety Report 17167193 (Version 1)
Quarter: 2019Q4

REPORT INFORMATION
  Report Type: Spontaneous
  Country: US (occurrence: US)
  Receive Date: 20191218
  Receipt Date: 20191218
  Transmission Date: 20200122
  Serious: Yes (Hospitalization)
  Sender: FDA-Public Use
  Company Number: US-B.I. PHARMACEUTICALS,INC./RIDGEFIELD-2019-BI-119868

PATIENT
  Age: 26 Month
  Sex: Female

DRUGS (1)
  1. CATAPRES [Suspect]
     Active Substance: CLONIDINE HYDROCHLORIDE
     Indication: PRODUCT USED FOR UNKNOWN INDICATION
     Dosage: FORM: PILL
     Route: 065

REACTIONS (5)
  - Bradypnoea [Recovered/Resolved]
  - Somnolence [Recovered/Resolved]
  - Accidental overdose [Recovered/Resolved]
  - Bradycardia [Recovered/Resolved]
  - Depression [Recovered/Resolved]
